FAERS Safety Report 13099405 (Version 2)
Quarter: 2017Q1

REPORT INFORMATION
  Report Type: Spontaneous
  Country: JP (occurrence: JP)
  Receive Date: 20170109
  Receipt Date: 20170209
  Transmission Date: 20170428
  Serious: Yes (Other)
  Sender: FDA-Public Use
  Company Number: JP-BAUSCH-BL-2016-031754

PATIENT
  Age: 75 Year
  Sex: Male
  Weight: 63.2 kg

DRUGS (2)
  1. VISUDYNE [Suspect]
     Active Substance: VERTEPORFIN
     Route: 065
     Dates: start: 20150702, end: 20150702
  2. VISUDYNE [Suspect]
     Active Substance: VERTEPORFIN
     Indication: AGE-RELATED MACULAR DEGENERATION
     Route: 065
     Dates: start: 20150205, end: 20150205

REACTIONS (4)
  - Visual acuity reduced [Recovering/Resolving]
  - Disease progression [Unknown]
  - Age-related macular degeneration [Unknown]
  - Retinal haemorrhage [Recovering/Resolving]

NARRATIVE: CASE EVENT DATE: 2015
